FAERS Safety Report 10158614 (Version 1)
Quarter: 2014Q2

REPORT INFORMATION
  Report Type: Spontaneous
  Country: GB (occurrence: GB)
  Receive Date: 20140508
  Receipt Date: 20140508
  Transmission Date: 20141212
  Serious: Yes (Other)
  Sender: FDA-Public Use
  Company Number: PHHY2014GB054267

PATIENT
  Age: 26 Year
  Sex: Male

DRUGS (1)
  1. GABAPENTIN [Suspect]
     Dosage: 1600 MG, UNK

REACTIONS (5)
  - Dystonia [Recovered/Resolved]
  - Wrong patient received medication [Recovered/Resolved]
  - Muscle spasms [Recovered/Resolved]
  - Joint stiffness [Recovered/Resolved]
  - Muscle contractions involuntary [Recovered/Resolved]
